FAERS Safety Report 13869918 (Version 2)
Quarter: 2020Q1

REPORT INFORMATION
  Report Type: Spontaneous
  Country: GB (occurrence: GB)
  Receive Date: 20170815
  Receipt Date: 20200203
  Transmission Date: 20200409
  Serious: Yes (Other)
  Sender: FDA-Public Use
  Company Number: GB-PFIZER INC-2017346632

PATIENT
  Age: 46 Year
  Sex: Female
  Weight: 71 kg

DRUGS (5)
  1. UNIROID HC [Concomitant]
     Dosage: 1 DF, 2X/DAY
     Dates: start: 20170519
  2. SULFASALAZINE. [Suspect]
     Active Substance: SULFASALAZINE
     Indication: CROHN^S DISEASE
  3. PREDNISOLONE. [Concomitant]
     Active Substance: PREDNISOLONE
     Dosage: 40 MG, 1X/DAY
     Dates: start: 20170519
  4. SULFASALAZINE. [Suspect]
     Active Substance: SULFASALAZINE
     Indication: RECTAL HAEMORRHAGE
     Dosage: 1000 MG, DAILY
     Route: 048
     Dates: start: 20170617, end: 20170628
  5. ORAMORPH [Concomitant]
     Active Substance: MORPHINE SULFATE
     Indication: PAIN
     Dosage: 10 MG, FOUR HOURLY WHEN REQUIRED, 10 MG/5 ML
     Dates: start: 20170602

REACTIONS (4)
  - Photosensitivity reaction [Recovered/Resolved]
  - Vasculitic rash [Recovered/Resolved]
  - Underdose [Unknown]
  - Pain [Unknown]

NARRATIVE: CASE EVENT DATE: 20170617
